FAERS Safety Report 15902833 (Version 1)
Quarter: 2019Q1

REPORT INFORMATION
  Report Type: Spontaneous
  Country: GB (occurrence: GB)
  Receive Date: 20190202
  Receipt Date: 20190202
  Transmission Date: 20190417
  Serious: Yes (Hospitalization, Other)
  Sender: FDA-Public Use
  Company Number: GB-AUROBINDO-AUR-APL-2019-004610

PATIENT

DRUGS (1)
  1. PARACETAMOL 500MG [Suspect]
     Active Substance: ACETAMINOPHEN
     Indication: PAIN
     Dosage: 6 DOSAGE FORM, DAILY (TAKEN 4 HOURLY FOR NEARLY 2 WEEKS)
     Route: 048
     Dates: start: 20181222

REACTIONS (4)
  - Coagulation time prolonged [Recovered/Resolved]
  - Alanine aminotransferase abnormal [Recovering/Resolving]
  - Accidental overdose [Unknown]
  - Appendicitis [Unknown]

NARRATIVE: CASE EVENT DATE: 20190103
